FAERS Safety Report 11242721 (Version 1)
Quarter: 2015Q3

REPORT INFORMATION
  Report Type: Spontaneous
  Country: DE (occurrence: None)
  Receive Date: 20150701
  Receipt Date: 20150701
  Transmission Date: 20151125
  Serious: Yes (Hospitalization)
  Sender: FDA-Public Use
  Company Number: None

PATIENT
  Age: 35 Year
  Sex: Female
  Weight: 100 kg

DRUGS (14)
  1. POTASSIUM SUPPLEMENTATION [Concomitant]
  2. CLOBAZEPAM [Concomitant]
  3. ENOXAPRIN (PROPHYLACTIC DOSE) [Concomitant]
  4. ACICLOVIR [Concomitant]
     Active Substance: ACYCLOVIR
  5. PROPRANOLOL [Concomitant]
     Active Substance: PROPRANOLOL\PROPRANOLOL HYDROCHLORIDE
  6. FEBUXOSTAT. [Concomitant]
     Active Substance: FEBUXOSTAT
  7. LEVETIRACETAM. [Concomitant]
     Active Substance: LEVETIRACETAM
  8. AZITHROMYCIN [Concomitant]
     Active Substance: AZITHROMYCIN ANHYDROUS
  9. METOCLOPRAMID [Concomitant]
     Active Substance: METOCLOPRAMIDE
  10. BLINATUMOMAB [Suspect]
     Active Substance: BLINATUMOMAB
     Indication: ACUTE LYMPHOCYTIC LEUKAEMIA
     Route: 042
     Dates: start: 20150627
  11. BLINATUMOMAB [Suspect]
     Active Substance: BLINATUMOMAB
     Route: 042
     Dates: start: 20150627
  12. PANTOPRAZOLE SODIUM. [Concomitant]
     Active Substance: PANTOPRAZOLE SODIUM
  13. VORICANZOLE [Concomitant]
  14. CETIRIZINE [Concomitant]
     Active Substance: CETIRIZINE HYDROCHLORIDE

REACTIONS (1)
  - Seizure [None]

NARRATIVE: CASE EVENT DATE: 20150630
